FAERS Safety Report 21324273 (Version 2)
Quarter: 2022Q3

REPORT INFORMATION
  Report Type: Spontaneous
  Country: US (occurrence: US)
  Receive Date: 20220912
  Receipt Date: 20220921
  Transmission Date: 20221026
  Serious: Yes (Other)
  Sender: FDA-Public Use
  Company Number: US-TEVA-2022-US-2071908

PATIENT
  Age: 60 Year
  Sex: Female

DRUGS (9)
  1. RISPERIDONE [Suspect]
     Active Substance: RISPERIDONE
     Indication: Schizoaffective disorder bipolar type
     Dosage: 1 MILLIGRAM DAILY; AT NIGHT
     Route: 065
     Dates: start: 2017
  2. QUETIAPINE [Suspect]
     Active Substance: QUETIAPINE
     Indication: Schizoaffective disorder bipolar type
     Dosage: 50 MILLIGRAM DAILY;
     Route: 065
     Dates: start: 2018
  3. QUETIAPINE [Suspect]
     Active Substance: QUETIAPINE
     Route: 065
     Dates: start: 201907
  4. QUETIAPINE [Suspect]
     Active Substance: QUETIAPINE
     Route: 065
  5. ARIPIPRAZOLE [Suspect]
     Active Substance: ARIPIPRAZOLE
     Indication: Schizoaffective disorder bipolar type
     Dosage: 7.5 MILLIGRAM DAILY;
     Route: 065
  6. ARIPIPRAZOLE [Suspect]
     Active Substance: ARIPIPRAZOLE
     Indication: Schizoaffective disorder bipolar type
     Dosage: DOSE TITRATED TO 30MG
     Route: 065
  7. SERTRALINE [Suspect]
     Active Substance: SERTRALINE HYDROCHLORIDE
     Indication: Post-traumatic stress disorder
     Route: 065
  8. SERTRALINE [Suspect]
     Active Substance: SERTRALINE HYDROCHLORIDE
     Indication: Bipolar disorder
  9. CYCLOBENZAPRINE [Concomitant]
     Active Substance: CYCLOBENZAPRINE
     Indication: Tendonitis
     Route: 065

REACTIONS (4)
  - Drug ineffective [Unknown]
  - Lip swelling [Unknown]
  - Sedation complication [Unknown]
  - Weight increased [Unknown]
